FAERS Safety Report 5683545-6 (Version None)
Quarter: 2008Q1

REPORT INFORMATION
  Report Type: 
  Country: None (occurrence: None)
  Receive Date: 20080326
  Receipt Date: 20080315
  Transmission Date: 20080703
  Serious: Yes (Hospitalization)
  Sender: FDA-Public Use
  Company Number: 230085J08BRA

PATIENT
  Age: 37 Year
  Sex: Male

DRUGS (2)
  1. REBIF [Suspect]
     Dosage: 44 MCG, 2 IN 1 WEEKS
     Dates: start: 20071203
  2. FLUOXETINE HCL [Concomitant]

REACTIONS (1)
  - SYNCOPE [None]
